FAERS Safety Report 4300362-X (Version None)
Quarter: 2004Q1

REPORT INFORMATION
  Report Type: 
  Country: None (occurrence: None)
  Receive Date: 20040220
  Receipt Date: 20040212
  Transmission Date: 20041129
  Serious: Yes (Hospitalization)
  Sender: FDA-Public Use
  Company Number: US-GLAXOSMITHKLINE-A0498412A

PATIENT
  Age: 27 Year
  Sex: Male

DRUGS (3)
  1. PAXIL [Suspect]
     Indication: HEADACHE
     Dosage: 10MG PER DAY
     Route: 048
     Dates: start: 20010101, end: 20020101
  2. HYDROCODONE [Concomitant]
  3. ROBAXIN [Concomitant]

REACTIONS (6)
  - AGGRESSION [None]
  - DEPENDENCE [None]
  - DEPRESSION [None]
  - DRUG WITHDRAWAL SYNDROME [None]
  - PARANOIA [None]
  - SUICIDE ATTEMPT [None]
